FAERS Safety Report 7866296-9 (Version None)
Quarter: 2011Q4

REPORT INFORMATION
  Report Type: 
  Country: None (occurrence: None)
  Receive Date: 20111028
  Receipt Date: 20111025
  Transmission Date: 20120403
  Serious: Yes (Hospitalization, Other)
  Sender: FDA-Public Use
  Company Number: US-TEVA-306665USA

PATIENT
  Age: 89 Year
  Sex: Male
  Weight: 68.1 kg

DRUGS (14)
  1. TORSEMIDE [Interacting]
     Indication: PRODUCT USED FOR UNKNOWN INDICATION
     Dosage: 10 MILLIGRAM;
     Route: 048
  2. VERAPAMIL [Interacting]
     Indication: HYPERTENSION
     Dosage: 120 MILLIGRAM;
     Route: 048
  3. FISH OIL [Concomitant]
     Indication: PRODUCT USED FOR UNKNOWN INDICATION
     Dosage: 1 GRAM;
     Route: 048
     Dates: start: 20080101
  4. FELODIPINE [Interacting]
     Indication: HYPERTENSION
     Dosage: 2.5 MILLIGRAM;
     Dates: start: 20100101
  5. PREDNISONE [Interacting]
     Indication: OEDEMA PERIPHERAL
     Dosage: 5 MILLIGRAM; AS NEEDED
     Route: 048
     Dates: start: 20110101, end: 20110701
  6. ALLOPURINOL [Concomitant]
     Indication: GOUT
     Dosage: 100 MILLIGRAM;
     Route: 048
  7. UBIDECARENONE [Concomitant]
     Indication: UBIQUINONE DECREASED
     Dosage: 100-300 MG
     Route: 048
     Dates: start: 20110101
  8. METOPROLOL TARTRATE [Interacting]
     Indication: PRODUCT USED FOR UNKNOWN INDICATION
     Dosage: 50 MILLIGRAM;
     Route: 048
     Dates: start: 20100101, end: 20110101
  9. DIGOXIN [Concomitant]
     Indication: PRODUCT USED FOR UNKNOWN INDICATION
     Dosage: 125 MICROGRAM;
     Route: 048
     Dates: start: 20110101, end: 20110101
  10. MIRTAZAPINE [Suspect]
     Indication: DEPRESSION
     Dosage: 15 MILLIGRAM;
     Route: 048
     Dates: start: 20080101
  11. GLUCOSAMINE SULFATE [Concomitant]
     Indication: ARTHRITIS
     Dosage: 1500 MILLIGRAM;
     Route: 048
     Dates: start: 20080101
  12. PRAVASTATIN [Interacting]
     Indication: BLOOD CHOLESTEROL INCREASED
     Dosage: 40 MILLIGRAM;
     Route: 048
     Dates: start: 20110601
  13. ROSUVASTATIN [Concomitant]
     Indication: BLOOD CHOLESTEROL INCREASED
     Dosage: 40 MILLIGRAM;
     Route: 048
     Dates: start: 20100101, end: 20110601
  14. CLOPIDOGREL [Concomitant]
     Indication: ANTICOAGULANT THERAPY
     Dosage: 75 MILLIGRAM;
     Route: 048

REACTIONS (8)
  - DRUG INTERACTION [None]
  - PRE-EXISTING CONDITION IMPROVED [None]
  - MUSCULAR WEAKNESS [None]
  - HEADACHE [None]
  - UNRESPONSIVE TO STIMULI [None]
  - VISION BLURRED [None]
  - CHEST DISCOMFORT [None]
  - DIZZINESS [None]
